FAERS Safety Report 9267002 (Version 2)
Quarter: 2013Q2

REPORT INFORMATION
  Report Type: Spontaneous
  Country: US (occurrence: US)
  Receive Date: 20130502
  Receipt Date: 20130530
  Transmission Date: 20140414
  Serious: No
  Sender: FDA-Public Use
  Company Number: US-PFIZER INC-2013132262

PATIENT
  Age: 43 Year
  Sex: Female

DRUGS (17)
  1. DETROL [Suspect]
     Dosage: UNK
  2. NEURONTIN [Suspect]
     Dosage: UNK
  3. IBUPROFEN [Suspect]
     Dosage: UNK
  4. METHYLPREDNISOLONE [Suspect]
     Dosage: UNK
  5. IMITREX [Suspect]
     Dosage: UNK
  6. CELLCEPT [Suspect]
     Dosage: UNK
  7. ASPIRIN [Suspect]
     Dosage: UNK
  8. ULTRAM [Suspect]
     Dosage: UNK
  9. DITROPAN [Suspect]
     Dosage: UNK
  10. PAMELOR [Suspect]
     Dosage: UNK
  11. EXCEDRIN [Suspect]
     Dosage: UNK
  12. CAFFEINE [Suspect]
     Dosage: UNK
  13. DEMEROL [Suspect]
     Dosage: UNK
  14. POTASSIUM [Suspect]
     Dosage: UNK
  15. PHENERGAN [Suspect]
     Dosage: UNK
  16. COMPAZINE [Suspect]
     Dosage: UNK
  17. MODAFINIL [Suspect]
     Dosage: UNK

REACTIONS (1)
  - Drug hypersensitivity [Unknown]
